FAERS Safety Report 9740037 (Version 2)
Quarter: 2013Q4

REPORT INFORMATION
  Report Type: Spontaneous
  Country: NL (occurrence: NL)
  Receive Date: 20131209
  Receipt Date: 20131223
  Transmission Date: 20140711
  Serious: Yes (Hospitalization)
  Sender: FDA-Public Use
  Company Number: NL-B.I. PHARMACEUTICALS,INC./RIDGEFIELD-2013-BI-40329NL

PATIENT
  Sex: Female
  Weight: 120 kg

DRUGS (6)
  1. PRADAXA [Suspect]
  2. OMEPRAZOLE [Suspect]
  3. METOPROLOL [Concomitant]
     Indication: ATRIAL FLUTTER
     Dosage: 200 MG
     Route: 048
  4. LANOXIN [Concomitant]
     Indication: ATRIAL FLUTTER
     Dosage: 0.25 MG
  5. CYMBALTA [Concomitant]
  6. CALCICHEW [Concomitant]

REACTIONS (1)
  - Cerebrovascular accident [Recovered/Resolved]
